FAERS Safety Report 9355247 (Version 1)
Quarter: 2013Q2

REPORT INFORMATION
  Report Type: Spontaneous
  Country: US (occurrence: US)
  Receive Date: 20130619
  Receipt Date: 20130619
  Transmission Date: 20140414
  Serious: No
  Sender: FDA-Public Use
  Company Number: US-PFIZER INC-2013183557

PATIENT
  Age: 59 Year
  Sex: Female
  Weight: 68.03 kg

DRUGS (3)
  1. LYRICA [Suspect]
     Indication: CEREBROVASCULAR ACCIDENT
     Dosage: 200 MG, 2X/DAY
     Dates: start: 2011
  2. LYRICA [Suspect]
     Indication: FIBROMYALGIA
  3. LYRICA [Suspect]
     Indication: RHEUMATOID ARTHRITIS

REACTIONS (6)
  - Off label use [Not Recovered/Not Resolved]
  - Vision blurred [Not Recovered/Not Resolved]
  - Dizziness [Unknown]
  - Dry mouth [Unknown]
  - Irritability [Unknown]
  - Hypersomnia [Unknown]
